FAERS Safety Report 4620602-7 (Version None)
Quarter: 2005Q1

REPORT INFORMATION
  Report Type: 
  Country: None (occurrence: None)
  Receive Date: 20050324
  Receipt Date: 20050310
  Transmission Date: 20050727
  Serious: Yes (Hospitalization)
  Sender: FDA-Public Use
  Company Number: 106186ISR

PATIENT
  Age: 48 Year
  Sex: Female

DRUGS (5)
  1. GLATIRAMER ACETATE [Suspect]
     Indication: MULTIPLE SCLEROSIS
     Dosage: 20 MG, SUBCUTANEOUS
     Route: 058
     Dates: start: 20020101, end: 20050129
  2. VENLAFAXINE HCL [Concomitant]
  3. BACLOFEN [Concomitant]
  4. TRAZODONE HYDROCHLORIDE [Concomitant]
  5. LORAZEPAM [Concomitant]

REACTIONS (4)
  - ACUTE PSYCHOSIS [None]
  - CONFUSIONAL STATE [None]
  - DELUSION [None]
  - HALLUCINATION [None]
